FAERS Safety Report 9466853 (Version 1)
Quarter: 2013Q3

REPORT INFORMATION
  Report Type: Spontaneous
  Country: US (occurrence: None)
  Receive Date: 20130816
  Receipt Date: 20130816
  Transmission Date: 20140515
  Serious: Yes (Death)
  Sender: FDA-Public Use
  Company Number: UTC-036683

PATIENT
  Age: 61 Year
  Sex: Female
  Weight: 78.64 kg

DRUGS (1)
  1. TYVASO [Suspect]
     Indication: COR PULMONALE CHRONIC
     Dosage: 18 TO 72 MICROGRAMS (4 IN 1 D), INHALATION
     Route: 055
     Dates: start: 20120319

REACTIONS (1)
  - Death [None]
